FAERS Safety Report 20585072 (Version 2)
Quarter: 2022Q1

REPORT INFORMATION
  Report Type: Report from Study
  Country: AU (occurrence: None)
  Receive Date: 20220311
  Receipt Date: 20220331
  Transmission Date: 20220423
  Serious: Yes (Hospitalization)
  Sender: FDA-Public Use
  Company Number: AU-ROCHE-3038199

PATIENT
  Age: 50 Year
  Sex: Female
  Weight: 95.4 kg

DRUGS (32)
  1. RO-7425781 [Suspect]
     Active Substance: RO-7425781
     Indication: Plasma cell myeloma
     Dosage: START DATE OF MOST RECENT DOSE OF  LAST STUDY DRUG ADMIN PRIOR AE/SAE IS 0.162 MG ON 19/NOV/2021?END
     Route: 042
     Dates: start: 20211109
  2. RO-7425781 [Suspect]
     Active Substance: RO-7425781
     Dosage: START DATE OF MOST RECENT DOSE OF RO7425781 (GPRC5D-TCB) ADMIN PRIOR TO AE/SAE IS 0.162 MG ON 24/FEB
     Route: 058
     Dates: start: 20220224
  3. TOCILIZUMAB [Suspect]
     Active Substance: TOCILIZUMAB
     Indication: Plasma cell myeloma
     Dosage: ON 30/JAN/2022, SHE RECEIVED THE MOST RECENT DOSE OF TOCILIZUMAB PRIOR TO AE AND SAE ONSET
     Route: 042
     Dates: start: 20220130
  4. BETAMETHASONE DIPROPIONATE [Concomitant]
     Active Substance: BETAMETHASONE DIPROPIONATE
     Indication: Rash
     Route: 042
  5. BETAMETHASONE DIPROPIONATE [Concomitant]
     Active Substance: BETAMETHASONE DIPROPIONATE
     Route: 067
  6. CETIRIZINE [Concomitant]
     Active Substance: CETIRIZINE HYDROCHLORIDE
     Indication: Rash
     Route: 048
     Dates: start: 20211203
  7. CLOTRIMAZOLE [Concomitant]
     Active Substance: CLOTRIMAZOLE
     Route: 061
     Dates: start: 20211129
  8. PIPERACILLIN AND TAZOBACTAM [Concomitant]
     Active Substance: PIPERACILLIN SODIUM\TAZOBACTAM SODIUM
     Indication: Cytokine release syndrome
     Route: 042
     Dates: start: 20211207
  9. AZITHROMYCIN [Concomitant]
     Active Substance: AZITHROMYCIN
     Indication: Cytokine release syndrome
     Route: 042
  10. VALGANCICLOVIR [Concomitant]
     Active Substance: VALGANCICLOVIR
  11. PIPERACILLIN SODIUM\TAZOBACTAM SODIUM [Concomitant]
     Active Substance: PIPERACILLIN SODIUM\TAZOBACTAM SODIUM
     Indication: Cytokine release syndrome
     Route: 042
     Dates: start: 20220129, end: 20220131
  12. AMOXICILLIN [Concomitant]
     Active Substance: AMOXICILLIN
     Route: 048
     Dates: start: 20220202, end: 20220207
  13. CLAVULANIC ACID [Concomitant]
     Active Substance: CLAVULANIC ACID
  14. DEXAMETHASONE [Concomitant]
     Active Substance: DEXAMETHASONE
     Route: 048
     Dates: start: 20220222, end: 20220222
  15. DEXAMETHASONE [Concomitant]
     Active Substance: DEXAMETHASONE
     Route: 042
     Dates: start: 20220127, end: 20220127
  16. DEXAMETHASONE [Concomitant]
     Active Substance: DEXAMETHASONE
     Route: 042
     Dates: start: 20220209, end: 20220209
  17. PROCHLORPERAZINE [Concomitant]
     Active Substance: PROCHLORPERAZINE
     Indication: Vertigo
     Route: 048
     Dates: start: 20220226, end: 20220227
  18. CALCIUM CARBONATE [Concomitant]
     Active Substance: CALCIUM CARBONATE
     Route: 048
     Dates: start: 20120611
  19. MAGNESIUM ASPARTATE [Concomitant]
     Active Substance: MAGNESIUM ASPARTATE
     Indication: Hypomagnesaemia
     Route: 048
     Dates: start: 2022
  20. ASPIRIN [Concomitant]
     Active Substance: ASPIRIN
     Route: 048
     Dates: start: 20180515
  21. PROCHLORPERAZINE [Concomitant]
     Active Substance: PROCHLORPERAZINE
     Indication: Nausea
     Route: 048
     Dates: start: 20180513
  22. ONDANSETRON [Concomitant]
     Active Substance: ONDANSETRON
     Indication: Nausea
     Route: 048
     Dates: start: 20190513
  23. PANTOPRAZOLE [Concomitant]
     Active Substance: PANTOPRAZOLE
     Indication: Gastrooesophageal reflux disease
     Route: 048
     Dates: start: 20201019
  24. MOUTHWASH [SODIUM BICARBONATE;SODIUM CHLORIDE] [Concomitant]
     Route: 048
     Dates: start: 20201018
  25. TRIMETHOPRIM [Concomitant]
     Active Substance: TRIMETHOPRIM
     Route: 048
     Dates: start: 20161222
  26. VALACYCLOVIR HYDROCHLORIDE [Concomitant]
     Active Substance: VALACYCLOVIR HYDROCHLORIDE
     Indication: Herpes simplex
     Route: 048
     Dates: start: 20160222
  27. VORICONAZOLE [Concomitant]
     Active Substance: VORICONAZOLE
     Route: 048
     Dates: start: 20211111
  28. AMLODIPINE [Concomitant]
     Active Substance: AMLODIPINE BESYLATE
  29. AMOXICILLIN [Concomitant]
     Active Substance: AMOXICILLIN
  30. ENOXAPARIN SODIUM [Concomitant]
     Active Substance: ENOXAPARIN SODIUM
  31. PREDNISOLONE [Concomitant]
     Active Substance: PREDNISOLONE
     Indication: Rash
     Route: 048
     Dates: start: 20211231, end: 20220302
  32. ALLOPURINOL [Concomitant]
     Active Substance: ALLOPURINOL
     Indication: Tumour lysis syndrome
     Route: 048
     Dates: start: 20211109

REACTIONS (3)
  - Headache [Recovered/Resolved]
  - Headache [Recovered/Resolved]
  - Vertigo [Recovered/Resolved]

NARRATIVE: CASE EVENT DATE: 20220129
